FAERS Safety Report 15693636 (Version 1)
Quarter: 2018Q4

REPORT INFORMATION
  Report Type: Spontaneous
  Country: US (occurrence: US)
  Receive Date: 20181206
  Receipt Date: 20181206
  Transmission Date: 20190205
  Serious: Yes (Hospitalization)
  Sender: FDA-Public Use
  Company Number: US-ROCHE-2226541

PATIENT
  Sex: Female

DRUGS (18)
  1. ATROVENT HFA [Concomitant]
     Active Substance: IPRATROPIUM BROMIDE
     Dosage: ONGOING: UNK
     Route: 065
  2. ARAVA [Concomitant]
     Active Substance: LEFLUNOMIDE
     Dosage: ONGOING: UNK
     Route: 065
  3. CARTIA XT [Concomitant]
     Active Substance: DILTIAZEM HYDROCHLORIDE
     Dosage: ONGOING: UNK
     Route: 065
  4. SUCRALFATE. [Concomitant]
     Active Substance: SUCRALFATE
  5. SULFASALAZINE. [Concomitant]
     Active Substance: SULFASALAZINE
  6. ESBRIET [Suspect]
     Active Substance: PIRFENIDONE
     Indication: IDIOPATHIC PULMONARY FIBROSIS
     Dosage: ONGOING: YES
     Route: 048
     Dates: start: 20180720
  7. MAGNESIUM OXIDE. [Concomitant]
     Active Substance: MAGNESIUM OXIDE
  8. SPIRONOLACTONE. [Concomitant]
     Active Substance: SPIRONOLACTONE
  9. CLONIDINE HCL [Concomitant]
     Active Substance: CLONIDINE HYDROCHLORIDE
  10. OMEPRAZOLE. [Concomitant]
     Active Substance: OMEPRAZOLE
  11. TYLENOL [Concomitant]
     Active Substance: ACETAMINOPHEN
  12. XARELTO [Concomitant]
     Active Substance: RIVAROXABAN
  13. BROVANA [Concomitant]
     Active Substance: ARFORMOTEROL TARTRATE
     Dosage: ONGOING: UNK
     Route: 065
  14. BUDESONIDE. [Concomitant]
     Active Substance: BUDESONIDE
     Dosage: ONGOING: UNK
     Route: 065
  15. DULOXETINE HCL [Concomitant]
     Active Substance: DULOXETINE HYDROCHLORIDE
  16. NASONEX [Concomitant]
     Active Substance: MOMETASONE FUROATE
  17. PREDNISONE. [Concomitant]
     Active Substance: PREDNISONE
  18. CODEINE [Concomitant]
     Active Substance: CODEINE
     Dosage: CODEINE#3
     Route: 065

REACTIONS (1)
  - Lung neoplasm malignant [Not Recovered/Not Resolved]
